FAERS Safety Report 7571230-5 (Version None)
Quarter: 2011Q2

REPORT INFORMATION
  Report Type: 
  Country: None (occurrence: None)
  Receive Date: 20110624
  Receipt Date: 20110617
  Transmission Date: 20111010
  Serious: Yes (Other)
  Sender: FDA-Public Use
  Company Number: A0929874A

PATIENT
  Sex: Female

DRUGS (8)
  1. HERCEPTIN [Concomitant]
  2. AVAPRO [Concomitant]
  3. XELODA [Concomitant]
  4. LUMIGAN [Concomitant]
  5. FISH OIL [Concomitant]
  6. TYKERB [Suspect]
     Indication: BREAST CANCER
     Dosage: 1000MG PER DAY
     Route: 048
     Dates: start: 20090901, end: 20110530
  7. CALCIUM WITH VITAMIN D [Concomitant]
  8. ZOMETA [Concomitant]

REACTIONS (5)
  - BREAST CANCER [None]
  - HEPATIC ENZYME INCREASED [None]
  - METASTASES TO LIVER [None]
  - DERMATITIS [None]
  - RASH [None]
